FAERS Safety Report 14466130 (Version 2)
Quarter: 2018Q1

REPORT INFORMATION
  Report Type: Spontaneous
  Country: US (occurrence: US)
  Receive Date: 20180131
  Receipt Date: 20180207
  Transmission Date: 20180509
  Serious: Yes (Other)
  Sender: FDA-Public Use
  Company Number: US-AMGEN-USASP2017184213

PATIENT
  Age: 63 Year
  Sex: Male
  Weight: 66.7 kg

DRUGS (5)
  1. ETOPOSIDE. [Concomitant]
     Active Substance: ETOPOSIDE
     Indication: NEUROENDOCRINE TUMOUR OF THE LUNG
  2. CISPLATIN. [Concomitant]
     Active Substance: CISPLATIN
     Indication: LARGE CELL LUNG CANCER
     Dosage: 109 MG, Q3WK (DAY 1)
     Dates: start: 20171023, end: 20180105
  3. CISPLATIN. [Concomitant]
     Active Substance: CISPLATIN
     Indication: NEUROENDOCRINE TUMOUR OF THE LUNG
  4. NEULASTA [Suspect]
     Active Substance: PEGFILGRASTIM
     Indication: WHITE BLOOD CELL COUNT ABNORMAL
     Dosage: 6 MG, UNK
     Route: 058
     Dates: start: 20171026
  5. ETOPOSIDE. [Concomitant]
     Active Substance: ETOPOSIDE
     Indication: LARGE CELL LUNG CANCER
     Dosage: 218 MG, Q3WK (DAY 1,2,3)
     Dates: start: 20171023

REACTIONS (11)
  - Prostatomegaly [Unknown]
  - Hepatic cyst [Unknown]
  - Lung cyst [Unknown]
  - Pancreatic calcification [Unknown]
  - Alveolar lung disease [Unknown]
  - Pancreatic atrophy [Unknown]
  - Renal cyst [Unknown]
  - Pleural effusion [Unknown]
  - Arteriosclerosis [Unknown]
  - Splenic rupture [Unknown]
  - Procedural pain [Unknown]

NARRATIVE: CASE EVENT DATE: 2017
